FAERS Safety Report 15886674 (Version 1)
Quarter: 2019Q1

REPORT INFORMATION
  Report Type: Spontaneous
  Country: CN (occurrence: CN)
  Receive Date: 20190129
  Receipt Date: 20190129
  Transmission Date: 20190417
  Serious: Yes (Hospitalization, Other)
  Sender: FDA-Public Use
  Company Number: CN-GILEAD-2019-0387315

PATIENT
  Age: 44 Year
  Sex: Male

DRUGS (1)
  1. ADEFOVIR DIPIVOXIL. [Suspect]
     Active Substance: ADEFOVIR DIPIVOXIL
     Indication: CHRONIC HEPATITIS B
     Dosage: 10 MG, QD
     Route: 065

REACTIONS (17)
  - Condition aggravated [Recovered/Resolved]
  - Gait disturbance [Recovered/Resolved]
  - Osteoporosis [Recovered/Resolved]
  - Nephrolithiasis [Recovered/Resolved]
  - Dysstasia [Recovered/Resolved]
  - Arthralgia [Recovered/Resolved]
  - Pain in extremity [Recovered/Resolved]
  - Joint swelling [Recovered/Resolved]
  - Renal mass [Recovered/Resolved]
  - Bone marrow oedema [Recovered/Resolved]
  - Osteitis [Recovered/Resolved]
  - Arthritis [Recovered/Resolved]
  - Hypophosphataemic osteomalacia [Recovered/Resolved]
  - Joint effusion [Recovered/Resolved]
  - Renal impairment [Recovered/Resolved]
  - Oedema [Recovered/Resolved]
  - Rib fracture [Recovered/Resolved]
